FAERS Safety Report 14703307 (Version 1)
Quarter: 2018Q2

REPORT INFORMATION
  Report Type: Spontaneous
  Country: DE (occurrence: DE)
  Receive Date: 20180402
  Receipt Date: 20180402
  Transmission Date: 20180711
  Serious: Yes (Other)
  Sender: FDA-Public Use
  Company Number: DE-AMGEN-DEUSP2018041981

PATIENT
  Age: 76 Year
  Sex: Female

DRUGS (5)
  1. TORASEMID [Concomitant]
     Active Substance: TORSEMIDE
  2. DIOVAN [Concomitant]
     Active Substance: VALSARTAN
  3. DEKRISTOL [Concomitant]
     Active Substance: CHOLECALCIFEROL
  4. ELTROXIN [Concomitant]
     Active Substance: LEVOTHYROXINE
  5. PROLIA [Suspect]
     Active Substance: DENOSUMAB
     Indication: PRODUCT USED FOR UNKNOWN INDICATION
     Dosage: 1 UNK, Q6MO
     Route: 058

REACTIONS (1)
  - Device expulsion [Not Recovered/Not Resolved]

NARRATIVE: CASE EVENT DATE: 201710
